FAERS Safety Report 7411799-4 (Version None)
Quarter: 2011Q2

REPORT INFORMATION
  Report Type: 
  Country: None (occurrence: None)
  Receive Date: 20110413
  Receipt Date: 20110125
  Transmission Date: 20111010
  Serious: Yes (Other)
  Sender: FDA-Public Use
  Company Number: US-BRISTOL-MYERS SQUIBB COMPANY-15510639

PATIENT
  Age: 74 Year
  Sex: Female

DRUGS (2)
  1. BENADRYL [Concomitant]
     Indication: PREMEDICATION
  2. ERBITUX [Suspect]
     Indication: HEAD AND NECK CANCER
     Dosage: 1 DF: 100CC

REACTIONS (4)
  - DYSPNOEA [None]
  - BRONCHOSPASM [None]
  - WHEEZING [None]
  - CHEST DISCOMFORT [None]
